FAERS Safety Report 20143565 (Version 5)
Quarter: 2022Q4

REPORT INFORMATION
  Report Type: Spontaneous
  Country: GB (occurrence: GB)
  Receive Date: 20211203
  Receipt Date: 20221212
  Transmission Date: 20230113
  Serious: Yes (Other)
  Sender: FDA-Public Use
  Company Number: None

PATIENT
  Age: 12 Year
  Sex: Female

DRUGS (5)
  1. IBUPROFEN [Suspect]
     Active Substance: IBUPROFEN
     Indication: Product used for unknown indication
     Route: 065
  2. PFIZER-BIONTECH COVID-19 VACCINE [Suspect]
     Active Substance: TOZINAMERAN
     Indication: COVID-19 immunisation
     Dosage: DOSE 1
     Route: 065
     Dates: start: 20211026
  3. PFIZER-BIONTECH COVID-19 VACCINE [Suspect]
     Active Substance: TOZINAMERAN
     Dosage: DOSE 2, SINGLE
     Route: 065
     Dates: start: 20211026
  4. COMIRNATY [Suspect]
     Active Substance: TOZINAMERAN
     Indication: Product used for unknown indication
     Dosage: DOSE 1
     Route: 065
     Dates: start: 20211026
  5. COMIRNATY [Suspect]
     Active Substance: TOZINAMERAN
     Dosage: DOSE 2
     Route: 065
     Dates: start: 20211026

REACTIONS (4)
  - Dyspnoea [Unknown]
  - Chest pain [Recovering/Resolving]
  - Tachycardia [Unknown]
  - Palpitations [Recovering/Resolving]

NARRATIVE: CASE EVENT DATE: 20211029
